FAERS Safety Report 4269289-6 (Version None)
Quarter: 2004Q1

REPORT INFORMATION
  Report Type: 
  Country: None (occurrence: None)
  Receive Date: 20040109
  Receipt Date: 20031229
  Transmission Date: 20041129
  Serious: Yes (Hospitalization)
  Sender: FDA-Public Use
  Company Number: 2003127136

PATIENT
  Age: 64 Year
  Sex: Male

DRUGS (2)
  1. NEURONTIN [Suspect]
     Indication: ILL-DEFINED DISORDER
     Dosage: ORAL
     Route: 048
     Dates: start: 20030701, end: 20030805
  2. ALL OTHER NON-THERAPEUTIC PRODUCTS [Concomitant]

REACTIONS (6)
  - DISTURBANCE IN ATTENTION [None]
  - HALLUCINATION [None]
  - MUSCULOSKELETAL STIFFNESS [None]
  - SEDATION [None]
  - VERTIGO POSITIONAL [None]
  - VOMITING [None]
